FAERS Safety Report 8809095 (Version 2)
Quarter: 2012Q4

REPORT INFORMATION
  Report Type: 
  Country: US (occurrence: US)
  Receive Date: 20120926
  Receipt Date: 20121101
  Transmission Date: 20130627
  Serious: Yes (Hospitalization)
  Sender: FDA-Public Use
  Company Number: US-PFIZER INC-2012237820

PATIENT
  Age: 44 Year
  Sex: Female
  Weight: 53.06 kg

DRUGS (12)
  1. LYRICA [Suspect]
     Indication: FIBROMYALGIA
     Dosage: 50 mg, 2x/day
     Dates: start: 20120701
  2. NEURONTIN [Suspect]
     Indication: FIBROMYALGIA
     Dosage: UNK
  3. NEURONTIN [Suspect]
     Dosage: UNK
     Dates: start: 201010, end: 2010
  4. OXYCODONE HYDROCHLORIDE [Suspect]
     Indication: PAIN
     Dosage: 15 mg, 4x/day
  5. OXYCODONE HYDROCHLORIDE [Suspect]
     Indication: FIBROMYALGIA
  6. SKELAXIN [Suspect]
     Indication: FIBROMYALGIA
     Dosage: 800 mg, UNK, couple of times
     Dates: start: 1998
  7. CLONAZEPAM [Suspect]
     Indication: FIBROMYALGIA
     Dosage: UNK,as needed by splitting in half
  8. CLONAZEPAM [Suspect]
     Indication: ANXIETY DISORDER
  9. CYMBALTA [Suspect]
     Indication: FIBROMYALGIA
     Dosage: UNK daily
     Dates: start: 2009, end: 2010
  10. CYMBALTA [Suspect]
     Dosage: UNK, daily
     Dates: start: 201010, end: 201010
  11. VICODIN [Suspect]
     Indication: FIBROMYALGIA
     Dosage: UNK,as needed
     Dates: start: 1994
  12. TOPAMAX [Suspect]
     Indication: FIBROMYALGIA
     Dosage: UNK
     Dates: start: 2007, end: 2007

REACTIONS (9)
  - Panic attack [Unknown]
  - Tachycardia [Unknown]
  - Drug ineffective [Unknown]
  - Amnesia [Unknown]
  - Confusional state [Unknown]
  - Mood swings [Unknown]
  - Paraesthesia [Unknown]
  - Burning sensation [Recovered/Resolved]
  - Hypoaesthesia [Not Recovered/Not Resolved]
